FAERS Safety Report 6761037-0 (Version None)
Quarter: 2010Q2

REPORT INFORMATION
  Report Type: 
  Country: None (occurrence: None)
  Receive Date: 20100608
  Receipt Date: 20100602
  Transmission Date: 20101027
  Serious: Yes (Hospitalization)
  Sender: FDA-Public Use
  Company Number: A0863294A

PATIENT
  Age: 42 Year
  Sex: Female

DRUGS (1)
  1. AVANDIA [Suspect]
     Indication: DIABETES MELLITUS
     Dosage: 2MG PER DAY
     Route: 048
     Dates: start: 20070412, end: 20090301

REACTIONS (4)
  - ANGINA PECTORIS [None]
  - ANGIOPATHY [None]
  - CARDIAC DISORDER [None]
  - HEPATIC STEATOSIS [None]
